FAERS Safety Report 16174265 (Version 5)
Quarter: 2023Q1

REPORT INFORMATION
  Report Type: Spontaneous
  Country: ES (occurrence: ES)
  Receive Date: 20190409
  Receipt Date: 20230222
  Transmission Date: 20230417
  Serious: Yes (Hospitalization, Congenital Anomaly, Other)
  Sender: FDA-Public Use
  Company Number: PHHY2019ES078349

PATIENT

DRUGS (2)
  1. GILENYA [Suspect]
     Active Substance: FINGOLIMOD HYDROCHLORIDE
     Indication: Foetal exposure during pregnancy
     Dosage: ATERNAL DOSE: 0.5 MG, QD
     Route: 064
  2. DALFAMPRIDINE [Concomitant]
     Active Substance: DALFAMPRIDINE
     Indication: Foetal exposure during pregnancy
     Dosage: MATERNAL DOSE: 20 MG, QD
     Route: 064

REACTIONS (2)
  - Renal aplasia [Recovered/Resolved]
  - Foetal exposure during pregnancy [Unknown]

NARRATIVE: CASE EVENT DATE: 20190201
